FAERS Safety Report 19154680 (Version 1)
Quarter: 2021Q2

REPORT INFORMATION
  Report Type: Spontaneous
  Country: IN (occurrence: IN)
  Receive Date: 20210419
  Receipt Date: 20210419
  Transmission Date: 20210717
  Serious: Yes (Other)
  Sender: FDA-Public Use
  Company Number: IN-PFIZER INC-2019536638

PATIENT
  Age: 62 Year
  Sex: Female

DRUGS (4)
  1. TYDOL [TAPENTADOL HYDROCHLORIDE] [Concomitant]
     Indication: PAIN
     Dosage: 50 MG, AS NEEDED
  2. PALBACE [Suspect]
     Active Substance: PALBOCICLIB
     Indication: BREAST CANCER METASTATIC
     Dosage: 100 MG, 1X/DAY
     Route: 048
     Dates: start: 20201209
  3. FEMARA [Concomitant]
     Active Substance: LETROZOLE
     Dosage: 2.5 MG, DAILY
     Dates: start: 20210322
  4. CALCIMAX 500 [Concomitant]
     Dosage: DAILY FOR 1 MONTH

REACTIONS (6)
  - Pleural effusion [Unknown]
  - Cough [Unknown]
  - Pericardial effusion [Unknown]
  - Pleural thickening [Unknown]
  - Lymphadenopathy mediastinal [Unknown]
  - Abdominal pain [Unknown]
